FAERS Safety Report 6018897-0 (Version None)
Quarter: 2008Q4

REPORT INFORMATION
  Report Type: 
  Country: None (occurrence: None)
  Receive Date: 20081224
  Receipt Date: 20081217
  Transmission Date: 20090506
  Serious: Yes (Hospitalization, Other)
  Sender: FDA-Public Use
  Company Number: US-JNJFOC-20081205108

PATIENT
  Sex: Female
  Weight: 64.86 kg

DRUGS (11)
  1. REMICADE [Suspect]
     Route: 042
  2. REMICADE [Suspect]
     Indication: PSORIASIS
     Route: 042
  3. ACTONEL [Concomitant]
     Indication: OSTEOPENIA
  4. ZETIA [Concomitant]
     Indication: BLOOD CHOLESTEROL
  5. NEXIUM [Concomitant]
     Indication: GASTROOESOPHAGEAL REFLUX DISEASE
  6. LEXAPRO [Concomitant]
     Indication: DEPRESSION
  7. CHANTIX [Concomitant]
     Indication: SMOKING CESSATION THERAPY
  8. MULTI-VITAMIN [Concomitant]
     Indication: GENERAL PHYSICAL CONDITION
  9. ASCORBIC ACID [Concomitant]
     Indication: GENERAL PHYSICAL CONDITION
  10. CALCIUM [Concomitant]
     Indication: GENERAL PHYSICAL CONDITION
  11. PREMARIN CREAM [Concomitant]
     Indication: HORMONE THERAPY

REACTIONS (9)
  - ARTHRALGIA [None]
  - BLOOD PRESSURE DECREASED [None]
  - DYSPNOEA [None]
  - ERYTHEMA [None]
  - INFUSION RELATED REACTION [None]
  - PAIN [None]
  - PYREXIA [None]
  - URTICARIA [None]
  - VOMITING [None]
